FAERS Safety Report 4828147-6 (Version None)
Quarter: 2005Q4

REPORT INFORMATION
  Report Type: 
  Country: None (occurrence: None)
  Receive Date: 20051110
  Receipt Date: 20051103
  Transmission Date: 20060501
  Serious: Yes (Hospitalization)
  Sender: FDA-Public Use
  Company Number: FRWYE109603NOV05

PATIENT
  Age: 28 Year
  Sex: Male

DRUGS (5)
  1. EFFEXOR [Suspect]
     Dosage: ORAL
     Route: 048
     Dates: end: 20050630
  2. ESPERDAL (DISULFIRAM) [Concomitant]
  3. TIAPRIDAL (TIAPRIDE) [Concomitant]
  4. AOTAL (ACAMPROSATE) [Concomitant]
  5. OXAZEPAM [Concomitant]

REACTIONS (7)
  - ALANINE AMINOTRANSFERASE INCREASED [None]
  - ASPARTATE AMINOTRANSFERASE INCREASED [None]
  - BLOOD BILIRUBIN INCREASED [None]
  - GAMMA-GLUTAMYLTRANSFERASE INCREASED [None]
  - PANCREATIC ENLARGEMENT [None]
  - PANCREATITIS ACUTE [None]
  - SERUM FERRITIN INCREASED [None]
